FAERS Safety Report 24752791 (Version 1)
Quarter: 2024Q4

REPORT INFORMATION
  Report Type: Spontaneous
  Country: US (occurrence: None)
  Receive Date: 20241218
  Receipt Date: 20241218
  Transmission Date: 20250115
  Serious: Yes (Hospitalization)
  Sender: Public
  Company Number: None

PATIENT
  Age: 71 Year
  Sex: Male

DRUGS (1)
  1. MAYZENT [Suspect]
     Active Substance: SIPONIMOD
     Indication: Multiple sclerosis
     Dosage: FREQUENCY : DAILY;?

REACTIONS (7)
  - Sepsis [None]
  - Intentional dose omission [None]
  - Speech disorder [None]
  - Dysphonia [None]
  - Mobility decreased [None]
  - Fatigue [None]
  - Taste disorder [None]
